FAERS Safety Report 9454178 (Version 2)
Quarter: 2013Q3

REPORT INFORMATION
  Report Type: Report from Study
  Country: US (occurrence: US)
  Receive Date: 20130812
  Receipt Date: 20130905
  Transmission Date: 20140515
  Serious: Yes (Hospitalization)
  Sender: FDA-Public Use
  Company Number: US-ACTELION-A-NJ2013-84453

PATIENT
  Age: 79 Year
  Sex: Female

DRUGS (3)
  1. TRACLEER [Suspect]
     Indication: PULMONARY ARTERIAL HYPERTENSION
     Dosage: 125 MG, UNK
     Route: 048
     Dates: start: 2012
  2. TRACLEER [Suspect]
     Dosage: 62.5 MG, UNK
     Route: 048
     Dates: start: 20120920, end: 2012
  3. OXYGEN [Concomitant]

REACTIONS (3)
  - Dyspnoea [Recovering/Resolving]
  - Fluid retention [Recovering/Resolving]
  - Local swelling [Recovering/Resolving]
